FAERS Safety Report 11782259 (Version 1)
Quarter: 2015Q4

REPORT INFORMATION
  Report Type: Spontaneous
  Country: CN (occurrence: CN)
  Receive Date: 20151127
  Receipt Date: 20151127
  Transmission Date: 20160305
  Serious: Yes (Death)
  Sender: FDA-Public Use
  Company Number: CN-ROCHE-1665824

PATIENT
  Age: 45 Year
  Sex: Male

DRUGS (1)
  1. TAMIFLU [Suspect]
     Active Substance: OSELTAMIVIR PHOSPHATE
     Indication: H1N1 INFLUENZA
     Route: 065

REACTIONS (2)
  - Death [Fatal]
  - No therapeutic response [Fatal]

NARRATIVE: CASE EVENT DATE: 2015
